FAERS Safety Report 7006663-9 (Version None)
Quarter: 2010Q3

REPORT INFORMATION
  Report Type: 
  Country: None (occurrence: None)
  Receive Date: 20100910
  Receipt Date: 20100127
  Transmission Date: 20110219
  Serious: Yes (Hospitalization, Other)
  Sender: FDA-Public Use
  Company Number: 2010SP005950

PATIENT
  Age: 30 Year
  Sex: Female
  Weight: 113.3993 kg

DRUGS (2)
  1. NUVARING [Suspect]
     Indication: PRODUCT USED FOR UNKNOWN INDICATION
     Dosage: VAG
     Route: 067
     Dates: start: 20080201, end: 20080303
  2. ALBUTEROL [Concomitant]

REACTIONS (15)
  - ASTHMA [None]
  - BACK PAIN [None]
  - BALANCE DISORDER [None]
  - CARDIAC MURMUR [None]
  - DEEP VEIN THROMBOSIS [None]
  - EYE SWELLING [None]
  - FALL [None]
  - IRON DEFICIENCY ANAEMIA [None]
  - LOSS OF EMPLOYMENT [None]
  - MENORRHAGIA [None]
  - MICROCYTIC ANAEMIA [None]
  - PAIN IN JAW [None]
  - PLATELET COUNT INCREASED [None]
  - PRESYNCOPE [None]
  - TRANSFERRIN SATURATION DECREASED [None]
